FAERS Safety Report 7429793-6 (Version None)
Quarter: 2011Q2

REPORT INFORMATION
  Report Type: 
  Country: None (occurrence: None)
  Receive Date: 20110421
  Receipt Date: 20110413
  Transmission Date: 20111010
  Serious: Yes (Life-Threatening, Hospitalization)
  Sender: FDA-Public Use
  Company Number: JP-MERCK-1005USA01685

PATIENT
  Age: 36 Year
  Sex: Female
  Weight: 47 kg

DRUGS (8)
  1. CRESTOR [Suspect]
     Indication: HYPERCHOLESTEROLAEMIA
     Route: 048
     Dates: start: 20100415, end: 20100506
  2. COZAAR [Suspect]
     Indication: HYPERTENSION
     Route: 048
     Dates: start: 20100415, end: 20100506
  3. TAKEPRON [Suspect]
     Indication: PROPHYLAXIS AGAINST GASTROINTESTINAL ULCER
     Route: 048
     Dates: start: 20100402, end: 20100506
  4. FUNGIZONE [Concomitant]
     Indication: PROPHYLAXIS
     Route: 048
     Dates: start: 20100402
  5. BAKTAR [Suspect]
     Indication: ANTIFUNGAL PROPHYLAXIS
     Route: 048
     Dates: start: 20100402, end: 20100506
  6. ALFAROL [Concomitant]
     Route: 048
     Dates: start: 20100402
  7. PREDONINE [Concomitant]
     Indication: IMMUNOSUPPRESSION
     Route: 048
     Dates: start: 20100420, end: 20100425
  8. PREDONINE [Concomitant]
     Route: 048
     Dates: start: 20100426

REACTIONS (1)
  - AGRANULOCYTOSIS [None]
